FAERS Safety Report 7247702-X (Version None)
Quarter: 2011Q1

REPORT INFORMATION
  Report Type: 
  Country: None (occurrence: None)
  Receive Date: 20110127
  Receipt Date: 20110113
  Transmission Date: 20110831
  Serious: Yes (Hospitalization)
  Sender: FDA-Public Use
  Company Number: ES-MERCK-1101ESP00018

PATIENT
  Age: 72 Year
  Sex: Female

DRUGS (8)
  1. CARBOPLATIN [Suspect]
     Indication: MALIGNANT MELANOMA STAGE IV
     Route: 042
     Dates: start: 20101201, end: 20101201
  2. MICONAZOLE NITRATE [Concomitant]
     Route: 048
     Dates: start: 20101201, end: 20101209
  3. METFORMIN [Concomitant]
     Indication: DIABETES MELLITUS
     Route: 065
     Dates: end: 20101209
  4. DACARBAZINE [Suspect]
     Indication: MALIGNANT MELANOMA STAGE IV
     Route: 042
     Dates: start: 20101201, end: 20101201
  5. INTERFERON ALFA-2B [Suspect]
     Indication: MALIGNANT MELANOMA STAGE IV
     Route: 058
     Dates: start: 20101209, end: 20101211
  6. EMEND [Suspect]
     Route: 048
     Dates: start: 20101202, end: 20101203
  7. EMEND [Suspect]
     Indication: PROPHYLAXIS
     Route: 048
     Dates: start: 20101201, end: 20101201
  8. ALDESLEUKIN [Suspect]
     Indication: MALIGNANT MELANOMA STAGE IV
     Route: 058
     Dates: start: 20101209, end: 20101211

REACTIONS (3)
  - PYREXIA [None]
  - PANCYTOPENIA [None]
  - RENAL FAILURE ACUTE [None]
